FAERS Safety Report 6028283-5 (Version None)
Quarter: 2008Q4

REPORT INFORMATION
  Report Type: 
  Country: None (occurrence: None)
  Receive Date: 20081231
  Receipt Date: 20081231
  Transmission Date: 20090506
  Serious: Yes (Hospitalization)
  Sender: FDA-Public Use
  Company Number: None

PATIENT
  Age: 86 Year
  Sex: Male
  Weight: 67.1324 kg

DRUGS (7)
  1. ERLOTONIB [Suspect]
     Indication: SQUAMOUS CELL CARCINOMA
     Dosage: 150 MG PO QD DAILY THROUGH RADIATION
     Route: 048
     Dates: start: 20081201, end: 20081219
  2. ERLOTONIB [Suspect]
     Indication: SQUAMOUS CELL CARCINOMA
     Dosage: 150 MG PO QD DAILY THROUGH RADIATION
     Route: 048
     Dates: start: 20081224, end: 20081230
  3. CRESTOR [Concomitant]
  4. TOPROL XE [Concomitant]
  5. ASPIRIN [Concomitant]
  6. MULTI-VITAMIN [Concomitant]
  7. FISH OIL [Concomitant]

REACTIONS (1)
  - HYPOVOLAEMIA [None]
